FAERS Safety Report 5747906-9 (Version None)
Quarter: 2008Q2

REPORT INFORMATION
  Report Type: 
  Country: None (occurrence: None)
  Receive Date: 20080523
  Receipt Date: 20080515
  Transmission Date: 20081010
  Serious: Yes (Other)
  Sender: FDA-Public Use
  Company Number: US-BAYER-200823260NA

PATIENT
  Age: 70 Year
  Sex: Female

DRUGS (8)
  1. FLUDARA [Suspect]
     Indication: CHRONIC LYMPHOCYTIC LEUKAEMIA
     Dosage: TOTAL DAILY DOSE: 25 MG/M2
     Dates: start: 20070901, end: 20080301
  2. ATACAND [Concomitant]
  3. LIPITOR [Concomitant]
  4. WELLBUTRIN [Concomitant]
  5. DIAZIDE [Concomitant]
  6. ADVAIR DISKUS 100/50 [Concomitant]
  7. ALBUTEROL [Concomitant]
  8. AROMIDEX [Concomitant]

REACTIONS (1)
  - BLINDNESS [None]
